FAERS Safety Report 25412187 (Version 2)
Quarter: 2025Q3

REPORT INFORMATION
  Report Type: Spontaneous
  Country: EU (occurrence: EU)
  Receive Date: 20250609
  Receipt Date: 20250721
  Transmission Date: 20251021
  Serious: Yes (Life-Threatening, Hospitalization, Other)
  Sender: UNICHEM
  Company Number: EU-UNICHEM LABORATORIES LIMITED-UNI-2025-ES-002396

PATIENT

DRUGS (1)
  1. AMIODARONE [Suspect]
     Active Substance: AMIODARONE
     Indication: Ventricular dysfunction
     Route: 065

REACTIONS (2)
  - Thyrotoxic crisis [Unknown]
  - Hyperthyroidism [Unknown]
